FAERS Safety Report 14289204 (Version 1)
Quarter: 2017Q4

REPORT INFORMATION
  Report Type: Report from Study
  Country: US (occurrence: US)
  Receive Date: 20171214
  Receipt Date: 20171214
  Transmission Date: 20180321
  Serious: No
  Sender: FDA-Public Use
  Company Number: PHEH2017US040024

PATIENT
  Age: 65 Year
  Sex: Male

DRUGS (1)
  1. TOBI PODHALER [Suspect]
     Active Substance: TOBRAMYCIN
     Indication: PSEUDOMONAS INFECTION
     Dosage: 1 DF, BID
     Route: 055
     Dates: start: 20171108

REACTIONS (4)
  - Dyspnoea [Not Recovered/Not Resolved]
  - Cough [Not Recovered/Not Resolved]
  - Body temperature increased [Unknown]
  - Sputum discoloured [Unknown]

NARRATIVE: CASE EVENT DATE: 20171108
